FAERS Safety Report 9620267 (Version 2)
Quarter: 2013Q4

REPORT INFORMATION
  Report Type: Spontaneous
  Country: US (occurrence: US)
  Receive Date: 20131014
  Receipt Date: 20131014
  Transmission Date: 20140711
  Serious: No
  Sender: FDA-Public Use
  Company Number: US-ALLERGAN-1307674US

PATIENT
  Sex: Female

DRUGS (4)
  1. ALPHAGAN [Suspect]
     Indication: GLAUCOMA
     Dosage: 2 GTT, TID
     Route: 047
  2. CALCIUM [Concomitant]
     Indication: SUPPLEMENTATION THERAPY
  3. BIRTH CONTROL PILL [Concomitant]
     Indication: CONTRACEPTION
  4. MULTIVITAMIN [Concomitant]
     Indication: PRODUCT USED FOR UNKNOWN INDICATION

REACTIONS (1)
  - Dry eye [Recovered/Resolved]
